FAERS Safety Report 10714004 (Version 2)
Quarter: 2015Q2

REPORT INFORMATION
  Report Type: Spontaneous
  Country: US (occurrence: US)
  Receive Date: 20150115
  Receipt Date: 20150408
  Transmission Date: 20150821
  Serious: No
  Sender: FDA-Public Use
  Company Number: US-ASTELLAS-2014US021072

PATIENT
  Age: 72 Year
  Sex: Female

DRUGS (5)
  1. MYRBETRIQ [Suspect]
     Active Substance: MIRABEGRON
     Indication: HYPERTONIC BLADDER
     Dosage: 50 MG DAILY
     Route: 065
     Dates: start: 201411
  2. PAXIL [Concomitant]
     Active Substance: PAROXETINE HYDROCHLORIDE
     Indication: PRODUCT USED FOR UNKNOWN INDICATION
     Dosage: UNK UNK, UNKNOWN FREQ.
     Route: 065
  3. ALLOPURINOL. [Concomitant]
     Active Substance: ALLOPURINOL
     Indication: PRODUCT USED FOR UNKNOWN INDICATION
     Dosage: UNK UNK, UNKNOWN FREQ.
     Route: 065
  4. HYDROCHLOROTHIAZIDE. [Concomitant]
     Active Substance: HYDROCHLOROTHIAZIDE
     Indication: PRODUCT USED FOR UNKNOWN INDICATION
     Dosage: UNK UNK, UNKNOWN FREQ.
     Route: 065
  5. STATIN [Concomitant]
     Active Substance: UNSPECIFIED INGREDIENT
     Indication: PRODUCT USED FOR UNKNOWN INDICATION
     Dosage: UNK UNK, UNKNOWN FREQ.
     Route: 065

REACTIONS (6)
  - Night sweats [Recovered/Resolved]
  - Rash [Recovered/Resolved]
  - Headache [Recovered/Resolved]
  - Viral infection [Recovered/Resolved]
  - Pyrexia [Recovered/Resolved]
  - Intentional product use issue [Unknown]

NARRATIVE: CASE EVENT DATE: 2014
